FAERS Safety Report 7403853-8 (Version None)
Quarter: 2011Q2

REPORT INFORMATION
  Report Type: 
  Country: None (occurrence: None)
  Receive Date: 20110401
  Receipt Date: 20110321
  Transmission Date: 20111010
  Serious: Yes (Hospitalization)
  Sender: FDA-Public Use
  Company Number: 029634

PATIENT
  Sex: Female

DRUGS (10)
  1. LACOSAMIDE [Suspect]
     Indication: PARTIAL SEIZURES
     Dosage: (400 MG ORAL), (500 MG ORAL), (550 MG ORAL)
     Route: 048
     Dates: start: 20090630, end: 20091014
  2. LACOSAMIDE [Suspect]
     Indication: PARTIAL SEIZURES
     Dosage: (400 MG ORAL), (500 MG ORAL), (550 MG ORAL)
     Route: 048
     Dates: start: 20090328, end: 20090618
  3. LACOSAMIDE [Suspect]
     Indication: PARTIAL SEIZURES
     Dosage: (400 MG ORAL), (500 MG ORAL), (550 MG ORAL)
     Route: 048
     Dates: start: 20090619, end: 20090629
  4. PANTOZOL /01263202/ [Concomitant]
  5. COLECALCIFEROL [Concomitant]
  6. PREDNISOLON /00016201/ [Concomitant]
  7. CALCIUM [Concomitant]
  8. CLOBAZAM [Concomitant]
  9. OXCARBAZEPINE [Concomitant]
  10. PHENOBARBITAL SRT [Concomitant]

REACTIONS (2)
  - CONVULSION [None]
  - CONDITION AGGRAVATED [None]
